FAERS Safety Report 16559720 (Version 1)
Quarter: 2019Q3

REPORT INFORMATION
  Report Type: Spontaneous
  Country: US (occurrence: US)
  Receive Date: 20190710
  Receipt Date: 20190710
  Transmission Date: 20191004
  Serious: Yes (Hospitalization)
  Sender: FDA-Public Use
  Company Number: None

PATIENT
  Age: 70 Year
  Sex: Female

DRUGS (12)
  1. DILTIAZEM ER 360 [Concomitant]
  2. LANTUS [Concomitant]
     Active Substance: INSULIN GLARGINE
  3. LOKELMA [Suspect]
     Active Substance: SODIUM ZIRCONIUM CYCLOSILICATE
     Indication: HYPERKALAEMIA
     Route: 048
     Dates: start: 20190614, end: 20190710
  4. METFORMIN 500 [Concomitant]
     Active Substance: METFORMIN HYDROCHLORIDE
  5. ELIQUIS 5 [Concomitant]
  6. GLIPIZIDE ER 10 [Concomitant]
  7. METOPROLOL. [Concomitant]
     Active Substance: METOPROLOL
  8. CRESTOR 10 [Concomitant]
  9. FUROSEMIDE 40 [Concomitant]
  10. NOVOLOG [Concomitant]
     Active Substance: INSULIN ASPART
  11. GABAPENTIN 300 [Concomitant]
     Active Substance: GABAPENTIN
  12. LOSARTAN. [Concomitant]
     Active Substance: LOSARTAN

REACTIONS (2)
  - Cardiac failure congestive [None]
  - Therapy cessation [None]

NARRATIVE: CASE EVENT DATE: 20190710
